FAERS Safety Report 5875902-X (Version None)
Quarter: 2008Q3

REPORT INFORMATION
  Report Type: 
  Country: None (occurrence: None)
  Receive Date: 20080910
  Receipt Date: 20080901
  Transmission Date: 20090109
  Serious: Yes (Hospitalization)
  Sender: FDA-Public Use
  Company Number: PHHO2008DE08338

PATIENT
  Sex: Male

DRUGS (3)
  1. SIMULECT [Suspect]
     Indication: LIVER TRANSPLANT
     Dosage: 20 MG / DAY
     Route: 042
     Dates: start: 20070620, end: 20070620
  2. NO TREATMENT RECEIVED NOMED [Suspect]
     Indication: LIVER TRANSPLANT
     Dosage: UNK
  3. PROGRAF [Suspect]
     Indication: LIVER TRANSPLANT
     Dosage: UNK
     Route: 048

REACTIONS (3)
  - BONE PAIN [None]
  - HEPATIC NEOPLASM MALIGNANT RECURRENT [None]
  - METASTASES TO BONE [None]
